FAERS Safety Report 12848171 (Version 2)
Quarter: 2019Q1

REPORT INFORMATION
  Report Type: Spontaneous
  Country: US (occurrence: US)
  Receive Date: 20161014
  Receipt Date: 20190121
  Transmission Date: 20190417
  Serious: No
  Sender: FDA-Public Use
  Company Number: US-JNJFOC-20160715572

PATIENT
  Age: 62 Year
  Sex: Female
  Weight: 86.18 kg

DRUGS (1)
  1. TYLENOL EXTRA STRENGTH [Suspect]
     Active Substance: ACETAMINOPHEN
     Indication: PROCEDURAL PAIN
     Dosage: 2 CAPLETS EVERY 4-6 HOURS
     Route: 048
     Dates: start: 20160610, end: 20160714

REACTIONS (1)
  - Expired product administered [Unknown]
